FAERS Safety Report 4584808-8 (Version None)
Quarter: 2005Q1

REPORT INFORMATION
  Report Type: 
  Country: None (occurrence: None)
  Receive Date: 20050214
  Receipt Date: 20040913
  Transmission Date: 20050727
  Serious: Yes (Hospitalization)
  Sender: FDA-Public Use
  Company Number: GMY 302

PATIENT
  Age: 82 Year
  Sex: Female

DRUGS (8)
  1. DEXAMETHASONE [Suspect]
     Indication: MULTIPLE MYELOMA
     Dosage: 40 MG/DAY, ORAL
     Route: 048
     Dates: start: 20020801, end: 20020816
  2. DEXAMETHASONE [Suspect]
     Indication: MYELOMA RECURRENCE
     Dosage: 40 MG/DAY, ORAL
     Route: 048
     Dates: start: 20020801, end: 20020816
  3. PROPRANOLOL [Concomitant]
  4. LEVOTHYROXINE SODIUM [Concomitant]
  5. VERAPAMIL [Concomitant]
  6. ZOLPIDEM TARTRATE [Concomitant]
  7. ISOSORBIDE MONOHYDRATE [Concomitant]
  8. HYDROCODONE WITH ACETAMINOPHEN OMEPRAZOLE AND EPOETIN ALFA [Concomitant]

REACTIONS (2)
  - ASTHENIA [None]
  - PNEUMONIA [None]
